FAERS Safety Report 20139753 (Version 1)
Quarter: 2021Q4

REPORT INFORMATION
  Report Type: Spontaneous
  Country: US (occurrence: None)
  Receive Date: 20211201
  Receipt Date: 20211201
  Transmission Date: 20220303
  Serious: Yes (Death, Life-Threatening, Hospitalization, Other)
  Sender: FDA-Public Use
  Company Number: None

PATIENT
  Age: 67 Year
  Sex: Female
  Weight: 74.5 kg

DRUGS (22)
  1. DEFIBROTIDE [Suspect]
     Active Substance: DEFIBROTIDE (BOVINE)
     Indication: Venoocclusive liver disease
     Dosage: OTHER FREQUENCY : Q6H;?
     Route: 041
     Dates: start: 20211103
  2. aminocaproic acid, 1,000 mg, TID [Concomitant]
  3. folic acid, 1 mg, BID [Concomitant]
  4. ganciclovir IVPB, 100 mg, Q12H [Concomitant]
  5. insulin lispro, 1-21 Units, Q6H [Concomitant]
  6. lansoprazole, 30 mg, daily [Concomitant]
  7. lidocaine, 1 Patch, daily [Concomitant]
  8. meropenem, 500 mg, every 12 hours [Concomitant]
  9. metoprolol tartrate, 12.5 mg, BID [Concomitant]
  10. micafungin IVPB, 100 mg, Q24H [Concomitant]
  11. multivitamin, 1 Tablet, daily [Concomitant]
  12. ondansetron, 8 mg, Q8H [Concomitant]
  13. prochlorperazine, 10 mg, TID [Concomitant]
  14. psyllium, 1 Packet, TID [Concomitant]
  15. spironolactone, 25 mg, BID [Concomitant]
  16. ursodiol, 300 mg, TID [Concomitant]
  17. vancomycin, 125 mg, daily [Concomitant]
  18. vitamin K, 10 mg, 2 x weekly [Concomitant]
  19. Scarboxymethylcellulose,1ggt,TID PRN [Concomitant]
  20. Acetaminophen 650mg PRN [Concomitant]
  21. dextrose, 25-50 mL Q30min PRN [Concomitant]
  22. Tramadol 50 mg Q6H PRN [Concomitant]

REACTIONS (8)
  - Multiple organ dysfunction syndrome [None]
  - Hypoxia [None]
  - Obstructive airways disorder [None]
  - Cardiac arrest [None]
  - Septic shock [None]
  - Cord blood transplant therapy [None]
  - Blood stem cell transplant failure [None]
  - Liver function test increased [None]

NARRATIVE: CASE EVENT DATE: 20211122
